FAERS Safety Report 23932243 (Version 1)
Quarter: 2024Q2

REPORT INFORMATION
  Report Type: Spontaneous
  Country: US (occurrence: None)
  Receive Date: 20240531
  Receipt Date: 20240531
  Transmission Date: 20240715
  Serious: No
  Sender: FDA-Public Use
  Company Number: None

PATIENT
  Age: 7 Year
  Sex: Female

DRUGS (1)
  1. DUPIXENT [Suspect]
     Active Substance: DUPILUMAB
     Indication: Dermatitis
     Dates: start: 20230821, end: 20240531

REACTIONS (6)
  - Eye disorder [None]
  - Pruritus [None]
  - Inflammation [None]
  - Erythema [None]
  - Periorbital disorder [None]
  - Eczema [None]

NARRATIVE: CASE EVENT DATE: 20240531
